FAERS Safety Report 5717176-6 (Version None)
Quarter: 2008Q2

REPORT INFORMATION
  Report Type: 
  Country: None (occurrence: None)
  Receive Date: 20080424
  Receipt Date: 20080414
  Transmission Date: 20081010
  Serious: Yes (Other)
  Sender: FDA-Public Use
  Company Number: AU-PFIZER INC-2008033368

PATIENT
  Sex: Male

DRUGS (1)
  1. EPIRUBICIN HYDROCHLORIDE [Suspect]
     Indication: CHEMOTHERAPY
     Route: 050
     Dates: start: 20070701, end: 20070701

REACTIONS (1)
  - MYALGIA [None]
